FAERS Safety Report 8206121-X (Version None)
Quarter: 2012Q1

REPORT INFORMATION
  Report Type: 
  Country: None (occurrence: None)
  Receive Date: 20120313
  Receipt Date: 20120306
  Transmission Date: 20120608
  Serious: Yes (Other)
  Sender: FDA-Public Use
  Company Number: US-AMGEN-KDL438944

PATIENT
  Sex: Male
  Weight: 83.9 kg

DRUGS (2)
  1. CYCLOSPORINE [Concomitant]
     Dosage: UNK
  2. ENBREL [Suspect]
     Indication: PRODUCT USED FOR UNKNOWN INDICATION
     Dosage: 50 MG, 2 TIMES/WK
     Route: 058
     Dates: start: 20090928, end: 20100729

REACTIONS (2)
  - OPTIC ISCHAEMIC NEUROPATHY [None]
  - RECTAL ABSCESS [None]
